FAERS Safety Report 12639827 (Version 2)
Quarter: 2016Q3

REPORT INFORMATION
  Report Type: Spontaneous
  Country: BR (occurrence: BR)
  Receive Date: 20160810
  Receipt Date: 20160926
  Transmission Date: 20161109
  Serious: Yes (Hospitalization)
  Sender: FDA-Public Use
  Company Number: BR-BAYER-2016-148948

PATIENT
  Age: 15 Year
  Sex: Female

DRUGS (1)
  1. YAZ [Suspect]
     Active Substance: DROSPIRENONE\ETHINYL ESTRADIOL
     Indication: MENSTRUATION IRREGULAR
     Dosage: 1 DF, QD
     Route: 048
     Dates: start: 20151120, end: 20160710

REACTIONS (4)
  - Deep vein thrombosis [Not Recovered/Not Resolved]
  - Pyelonephritis [None]
  - Bacterial infection [Recovering/Resolving]
  - Off label use [None]

NARRATIVE: CASE EVENT DATE: 201607
